FAERS Safety Report 6583029-7 (Version None)
Quarter: 2010Q1

REPORT INFORMATION
  Report Type: 
  Country: None (occurrence: None)
  Receive Date: 20100212
  Receipt Date: 20100212
  Transmission Date: 20100710
  Serious: Yes (Life-Threatening)
  Sender: FDA-Public Use
  Company Number: None

PATIENT
  Age: 39 Year
  Sex: Male
  Weight: 104.2 kg

DRUGS (1)
  1. ACETAMINOPHEN W/ PROPOXYPHENE HCL [Suspect]
     Indication: DRUG ABUSE
     Dosage: 100/650 MG UNKNOWN PO
     Route: 048
     Dates: start: 20091006, end: 20091006

REACTIONS (3)
  - LOSS OF CONSCIOUSNESS [None]
  - SELF-MEDICATION [None]
  - SYNCOPE [None]
